FAERS Safety Report 9541311 (Version 1)
Quarter: 2013Q3

REPORT INFORMATION
  Report Type: Report from Study
  Country: US (occurrence: US)
  Receive Date: 20130923
  Receipt Date: 20130923
  Transmission Date: 20140515
  Serious: Yes (Hospitalization, Other)
  Sender: FDA-Public Use
  Company Number: US-ROCHE-1276132

PATIENT
  Age: 49 Year
  Sex: Female
  Weight: 240 kg

DRUGS (10)
  1. XOLAIR [Suspect]
     Indication: ASTHMA
     Route: 065
     Dates: start: 20130905
  2. XOPENEX [Concomitant]
     Indication: ASTHMA
     Route: 065
     Dates: start: 2008
  3. LASIX [Concomitant]
     Route: 048
     Dates: start: 20130905
  4. ADVAIR [Concomitant]
     Indication: ASTHMA
     Route: 065
     Dates: start: 201306
  5. ADVAIR [Concomitant]
     Route: 065
     Dates: start: 201307
  6. QVAR [Concomitant]
     Indication: ASTHMA
     Route: 065
     Dates: start: 201307
  7. SINGULAIR [Concomitant]
     Indication: ASTHMA
     Route: 048
     Dates: start: 2008
  8. PROTONIX (OMEPRAZOLE) [Concomitant]
     Indication: ASTHMA
     Route: 048
     Dates: start: 200902
  9. PREDNISONE [Concomitant]
     Indication: ASTHMA
     Dosage: FOR 10 DAYS
     Route: 048
     Dates: start: 20130904
  10. SAVELLA [Concomitant]
     Indication: FALL
     Route: 048
     Dates: start: 2009

REACTIONS (6)
  - Pulmonary oedema [Recovered/Resolved]
  - Myalgia [Recovering/Resolving]
  - Tachycardia [Recovering/Resolving]
  - Muscle spasms [Recovering/Resolving]
  - General physical health deterioration [Not Recovered/Not Resolved]
  - Dysphonia [Recovering/Resolving]
